FAERS Safety Report 5393382-8 (Version None)
Quarter: 2007Q3

REPORT INFORMATION
  Report Type: 
  Country: None (occurrence: None)
  Receive Date: 20070723
  Receipt Date: 20070710
  Transmission Date: 20080115
  Serious: Yes (Other)
  Sender: FDA-Public Use
  Company Number: PHBS2007US12054

PATIENT
  Age: 65 Year
  Sex: Female

DRUGS (2)
  1. BLOOD TRANSFUSION, AUXILIARY PRODUCTS [Concomitant]
  2. DEFEROXAMINE MESYLATE [Suspect]
     Dosage: 100 IU/KG 3 TIMES PER WEEK

REACTIONS (3)
  - MACULOPATHY [None]
  - RETINAL DETACHMENT [None]
  - VISUAL ACUITY REDUCED [None]
